FAERS Safety Report 9903228 (Version 2)
Quarter: 2014Q3

REPORT INFORMATION
  Report Type: Spontaneous
  Country: US (occurrence: US)
  Receive Date: 20140217
  Receipt Date: 20140818
  Transmission Date: 20150326
  Serious: Yes (Hospitalization, Other)
  Sender: FDA-Public Use
  Company Number: US-009507513-1402USA006539

PATIENT
  Sex: Female
  Weight: 56.24 kg

DRUGS (1)
  1. NUVARING [Suspect]
     Active Substance: ETHINYL ESTRADIOL\ETONOGESTREL
     Indication: CONTRACEPTION
     Dosage: UNK
     Route: 067
     Dates: start: 2005, end: 20060624

REACTIONS (8)
  - Nausea [Unknown]
  - Pre-eclampsia [Recovered/Resolved]
  - Haemorrhoids [Unknown]
  - Female sterilisation [Recovered/Resolved]
  - Pneumonia [Unknown]
  - Maternal exposure before pregnancy [Unknown]
  - Caesarean section [Recovered/Resolved]
  - Pulmonary embolism [Unknown]

NARRATIVE: CASE EVENT DATE: 20060707
